FAERS Safety Report 7998425-0 (Version None)
Quarter: 2011Q4

REPORT INFORMATION
  Report Type: 
  Country: None (occurrence: None)
  Receive Date: 20111221
  Receipt Date: 20111013
  Transmission Date: 20120403
  Serious: No
  Sender: FDA-Public Use
  Company Number: US-GLAXOSMITHKLINE-A0949175A

PATIENT
  Sex: Female
  Weight: 70.9 kg

DRUGS (1)
  1. LOVAZA [Suspect]
     Indication: BLOOD CHOLESTEROL
     Route: 065

REACTIONS (2)
  - DIARRHOEA [None]
  - MUSCLE SPASMS [None]
